FAERS Safety Report 6416084-5 (Version None)
Quarter: 2009Q4

REPORT INFORMATION
  Report Type: 
  Country: None (occurrence: None)
  Receive Date: 20091027
  Receipt Date: 20091015
  Transmission Date: 20100525
  Serious: Yes (Other)
  Sender: FDA-Public Use
  Company Number: US-CELGENEUS-163-21880-09091509

PATIENT
  Sex: Female

DRUGS (3)
  1. REVLIMID [Suspect]
     Indication: MULTIPLE MYELOMA
     Route: 048
     Dates: start: 20090801
  2. REVLIMID [Suspect]
     Route: 048
     Dates: start: 20080501
  3. REVLIMID [Suspect]
     Route: 048
     Dates: start: 20071120

REACTIONS (1)
  - DEAFNESS NEUROSENSORY [None]
